FAERS Safety Report 23502538 (Version 1)
Quarter: 2024Q1

REPORT INFORMATION
  Report Type: Spontaneous
  Country: US (occurrence: US)
  Receive Date: 20240208
  Receipt Date: 20240208
  Transmission Date: 20240410
  Serious: No
  Sender: FDA-Public Use
  Company Number: US-INTRA-CELLULAR THERAPIES, INC.-2023ICT00584

PATIENT
  Age: 40 Year
  Sex: Female

DRUGS (1)
  1. CAPLYTA [Suspect]
     Active Substance: LUMATEPERONE
     Dosage: UNK
     Dates: start: 202304, end: 202304

REACTIONS (4)
  - Dry eye [Unknown]
  - Lip dry [Unknown]
  - Paranasal sinus hyposecretion [Unknown]
  - Dry mouth [Unknown]

NARRATIVE: CASE EVENT DATE: 20230401
